FAERS Safety Report 7068735-2 (Version None)
Quarter: 2010Q4

REPORT INFORMATION
  Report Type: 
  Country: None (occurrence: None)
  Receive Date: 20101028
  Receipt Date: 20101020
  Transmission Date: 20110411
  Serious: Yes (Other)
  Sender: FDA-Public Use
  Company Number: US-PFIZER INC-2010123915

PATIENT
  Sex: Male
  Weight: 13.605 kg

DRUGS (13)
  1. GENOTROPIN [Suspect]
     Indication: GROWTH HORMONE DEFICIENCY
     Dosage: 0.4 MG, 1X/DAY
     Route: 058
     Dates: start: 20080101, end: 20100801
  2. GENOTROPIN [Suspect]
     Dosage: 0.6 MG, UNK
     Route: 058
     Dates: start: 20100801, end: 20101001
  3. CALCITRIOL [Concomitant]
     Dosage: UNK
  4. CALCIUM CARBONATE [Concomitant]
     Dosage: UNK
  5. MIRALAX [Concomitant]
     Dosage: UNK
  6. NUROMAX [Concomitant]
     Dosage: UNK
  7. ZOFRAN [Concomitant]
     Dosage: UNK
  8. POLY-VI-SOL [Concomitant]
     Dosage: UNK
  9. PREVACID [Concomitant]
     Indication: GASTROOESOPHAGEAL REFLUX DISEASE
     Dosage: UNK
     Dates: start: 20070101
  10. PULMICORT [Concomitant]
     Indication: LUNG DISORDER
     Dosage: UNK
     Dates: start: 20070101
  11. XOPENEX [Concomitant]
     Dosage: UNK
  12. ROBINUL [Concomitant]
     Dosage: UNK
  13. PREDNISONE [Concomitant]
     Dosage: UNK

REACTIONS (2)
  - OVERDOSE [None]
  - PNEUMONIA [None]
